FAERS Safety Report 10655482 (Version 1)
Quarter: 2014Q4

REPORT INFORMATION
  Report Type: Spontaneous
  Country: US (occurrence: None)
  Receive Date: 20141215
  Receipt Date: 20141215
  Transmission Date: 20150529
  Serious: No
  Sender: FDA-Public Use
  Company Number: None

PATIENT
  Age: 62 Year
  Sex: Female
  Weight: 99.79 kg

DRUGS (1)
  1. ASTHMANEFRIN [Suspect]
     Active Substance: RACEPINEPHRINE HYDROCHLORIDE
     Indication: ASTHMA
     Dosage: 1 VIAL; EVERY 3 HOURS
     Route: 055
     Dates: start: 20141213, end: 20141213

REACTIONS (2)
  - Sputum discoloured [None]
  - Throat irritation [None]

NARRATIVE: CASE EVENT DATE: 20141213
